FAERS Safety Report 17845957 (Version 1)
Quarter: 2020Q2

REPORT INFORMATION
  Report Type: Spontaneous
  Country: US (occurrence: US)
  Receive Date: 20200601
  Receipt Date: 20200601
  Transmission Date: 20200714
  Serious: Yes (Death)
  Sender: FDA-Public Use
  Company Number: US-MYLANLABS-2020M1051648

PATIENT
  Age: 22 Year
  Sex: Female

DRUGS (2)
  1. TETRACAINE. [Suspect]
     Active Substance: TETRACAINE
     Indication: PAIN IN EXTREMITY
     Route: 061
  2. LIDOCAINE. [Suspect]
     Active Substance: LIDOCAINE
     Indication: PAIN IN EXTREMITY
     Dosage: UNK
     Route: 061

REACTIONS (5)
  - Intentional product misuse [Fatal]
  - Toxicity to various agents [Fatal]
  - Brain injury [Fatal]
  - Cardiac arrest [Fatal]
  - Seizure [Fatal]
